FAERS Safety Report 21252873 (Version 3)
Quarter: 2022Q4

REPORT INFORMATION
  Report Type: Report from Study
  Country: US (occurrence: US)
  Receive Date: 20220825
  Receipt Date: 20221006
  Transmission Date: 20230113
  Serious: Yes (Other)
  Sender: FDA-Public Use
  Company Number: US-KYOWAKIRIN-2022BKK013370

PATIENT

DRUGS (1)
  1. CRYSVITA [Suspect]
     Active Substance: BUROSUMAB-TWZA
     Indication: Hypophosphataemic osteomalacia
     Dosage: 30 MG, 1X/4 WEEKS (X 28 DAYS)
     Route: 065

REACTIONS (5)
  - Prostate cancer [Unknown]
  - Squamous cell carcinoma [Unknown]
  - COVID-19 [Recovering/Resolving]
  - Hypersomnia [Not Recovered/Not Resolved]
  - Hernia [Unknown]

NARRATIVE: CASE EVENT DATE: 20220821
